FAERS Safety Report 5246233-6 (Version None)
Quarter: 2007Q1

REPORT INFORMATION
  Report Type: 
  Country: None (occurrence: None)
  Receive Date: 20070221
  Receipt Date: 20070209
  Transmission Date: 20070707
  Serious: Yes (Death)
  Sender: FDA-Public Use
  Company Number: 2007-00196

PATIENT
  Age: 44 Year
  Sex: Female

DRUGS (2)
  1. TRELSTAR DEPOT (WITH CLIP'N'JET) (WATSON LABORATORIES)(TRIPTORELIN PAM [Suspect]
     Indication: OVARIAN FAILURE
     Dates: start: 20060328, end: 20061101
  2. EXEMESTANE [Suspect]
     Indication: OVARIAN FAILURE
     Dates: start: 20060701, end: 20061201

REACTIONS (1)
  - DIZZINESS [None]
